FAERS Safety Report 4654898-2 (Version None)
Quarter: 2005Q2

REPORT INFORMATION
  Report Type: 
  Country: None (occurrence: None)
  Receive Date: 20050504
  Receipt Date: 20050428
  Transmission Date: 20051028
  Serious: Yes (Death)
  Sender: FDA-Public Use
  Company Number: FRWYE629428APR05

PATIENT
  Age: 75 Year

DRUGS (1)
  1. EFFEXOR [Suspect]
     Dosage: 50 MG, 2X PER 1 DAY, ORAL
     Route: 048

REACTIONS (1)
  - ARRHYTHMIA [None]
